FAERS Safety Report 7524973-3 (Version None)
Quarter: 2011Q2

REPORT INFORMATION
  Report Type: 
  Country: None (occurrence: None)
  Receive Date: 20110606
  Receipt Date: 20110524
  Transmission Date: 20111010
  Serious: Yes (Other)
  Sender: FDA-Public Use
  Company Number: US-BAYER-2011-024196

PATIENT
  Age: 20 Year
  Sex: Female
  Weight: 56 kg

DRUGS (1)
  1. MIRENA [Suspect]
     Dosage: DAILY DOSE 20 ?G
     Route: 015
     Dates: start: 20110228, end: 20110317

REACTIONS (4)
  - PRODUCT SHAPE ISSUE [None]
  - DEVICE DISLOCATION [None]
  - METRORRHAGIA [None]
  - UTERINE SPASM [None]
